FAERS Safety Report 18152218 (Version 2)
Quarter: 2020Q3

REPORT INFORMATION
  Report Type: Report from Study
  Country: US (occurrence: US)
  Receive Date: 20200814
  Receipt Date: 20200909
  Transmission Date: 20201103
  Serious: Yes (Hospitalization, Other)
  Sender: FDA-Public Use
  Company Number: US-MYLANLABS-2020M1070033

PATIENT
  Sex: Male
  Weight: 123 kg

DRUGS (7)
  1. COGENTIN [Concomitant]
     Active Substance: BENZTROPINE MESYLATE
     Dosage: 1 MILLIGRAM, BID
  2. CLOZAPINE. [Suspect]
     Active Substance: CLOZAPINE
     Indication: SCHIZOPHRENIA
     Dosage: 50 MILLIGRAM, BID (TWICE PER DAY)
     Route: 048
     Dates: start: 20200807, end: 20200821
  3. TRILAFON [Concomitant]
     Active Substance: PERPHENAZINE
     Dosage: 2 MILLIGRAM, TID
  4. LAMICTAL [Concomitant]
     Active Substance: LAMOTRIGINE
     Dosage: 125 MILLIGRAM, QD
  5. ZOLOFT [Concomitant]
     Active Substance: SERTRALINE HYDROCHLORIDE
     Dosage: 200 MILLIGRAM, QD
  6. CLOZAPINE. [Suspect]
     Active Substance: CLOZAPINE
     Dosage: 500 MILLIGRAM, PM (BEDTIME)
     Route: 048
     Dates: start: 20200807, end: 20200821
  7. CLOZAPINE. [Suspect]
     Active Substance: CLOZAPINE
     Dosage: 300 MILLIGRAM, PM (BEDTIME)
     Route: 048
     Dates: start: 2020

REACTIONS (3)
  - Electrocardiogram QT prolonged [Recovering/Resolving]
  - Antipsychotic drug level increased [Unknown]
  - Hospitalisation [Recovered/Resolved]
